FAERS Safety Report 7679628-1 (Version None)
Quarter: 2011Q3

REPORT INFORMATION
  Report Type: 
  Country: None (occurrence: None)
  Receive Date: 20110809
  Receipt Date: 20110726
  Transmission Date: 20111222
  Serious: Yes (Hospitalization, Other)
  Sender: FDA-Public Use
  Company Number: 2011MA010764

PATIENT
  Sex: Female

DRUGS (2)
  1. DIAZEPAM [Suspect]
  2. XOLAIR [Suspect]
     Indication: ASTHMA
     Dosage: 225 MG, BIW

REACTIONS (3)
  - DRUG DOSE OMISSION [None]
  - OVERDOSE [None]
  - RESPIRATORY FAILURE [None]
